FAERS Safety Report 4780915-5 (Version None)
Quarter: 2005Q3

REPORT INFORMATION
  Report Type: 
  Country: None (occurrence: None)
  Receive Date: 20050927
  Receipt Date: 20050927
  Transmission Date: 20060218
  Serious: Yes (Hospitalization)
  Sender: FDA-Public Use
  Company Number: None

PATIENT
  Age: 44 Year
  Sex: Female
  Weight: 65 kg

DRUGS (1)
  1. TAXOL [Suspect]
     Indication: BREAST CANCER
     Dosage: 132 MG IV
     Route: 042
     Dates: start: 20050913

REACTIONS (7)
  - ASTHENIA [None]
  - BODY TEMPERATURE INCREASED [None]
  - CATHETER RELATED INFECTION [None]
  - DYSPNOEA [None]
  - MALAISE [None]
  - STAPHYLOCOCCAL INFECTION [None]
  - WHEEZING [None]
